FAERS Safety Report 23238671 (Version 2)
Quarter: 2023Q4

REPORT INFORMATION
  Report Type: Spontaneous
  Country: JP (occurrence: JP)
  Receive Date: 20231129
  Receipt Date: 20231220
  Transmission Date: 20240109
  Serious: Yes (Other)
  Sender: FDA-Public Use
  Company Number: JP-AMGEN-JPNSP2023210714

PATIENT
  Sex: Female

DRUGS (1)
  1. BLINCYTO [Suspect]
     Active Substance: BLINATUMOMAB
     Indication: B precursor type acute leukaemia
     Dosage: 28 MICROGRAM, DRIP INFUSION
     Route: 042
     Dates: start: 20230706, end: 20231026

REACTIONS (1)
  - Acute lymphocytic leukaemia recurrent [Recovered/Resolved]

NARRATIVE: CASE EVENT DATE: 20231030
